FAERS Safety Report 18384607 (Version 1)
Quarter: 2020Q4

REPORT INFORMATION
  Report Type: Report from Study
  Country: BR (occurrence: BR)
  Receive Date: 20201015
  Receipt Date: 20201015
  Transmission Date: 20210114
  Serious: Yes (Other)
  Sender: FDA-Public Use
  Company Number: NVSC2020BR274299

PATIENT
  Age: 63 Year
  Sex: Female

DRUGS (2)
  1. EXFORGE HCT [Suspect]
     Active Substance: AMLODIPINE BESYLATE\HYDROCHLOROTHIAZIDE\VALSARTAN
     Indication: PRODUCT USED FOR UNKNOWN INDICATION
     Dosage: 1 DF, BY MORNING, 160/12.5/5
     Route: 065
  2. LOSARTAN. [Suspect]
     Active Substance: LOSARTAN
     Indication: PRODUCT USED FOR UNKNOWN INDICATION
     Dosage: UNK, 50
     Route: 065

REACTIONS (7)
  - Cerebrovascular accident [Recovered/Resolved]
  - Cerebral ischaemia [Unknown]
  - Hypertension [Unknown]
  - Blood pressure increased [Unknown]
  - Memory impairment [Unknown]
  - Mental impairment [Unknown]
  - Limb discomfort [Unknown]

NARRATIVE: CASE EVENT DATE: 20201004
